FAERS Safety Report 18217475 (Version 1)
Quarter: 2020Q3

REPORT INFORMATION
  Report Type: Spontaneous
  Country: US (occurrence: US)
  Receive Date: 20200901
  Receipt Date: 20200901
  Transmission Date: 20201103
  Serious: Yes (Hospitalization)
  Sender: FDA-Public Use
  Company Number: US-FARMAPROD-202008-1111

PATIENT
  Sex: Male
  Weight: 72.64 kg

DRUGS (16)
  1. OXERVATE [Suspect]
     Active Substance: CENEGERMIN-BKBJ
     Indication: ULCERATIVE KERATITIS
     Route: 047
     Dates: start: 20200813
  2. SIMBRINZA [Concomitant]
     Active Substance: BRIMONIDINE TARTRATE\BRINZOLAMIDE
  3. CYMBALTA [Concomitant]
     Active Substance: DULOXETINE HYDROCHLORIDE
  4. SUBOXONE [Concomitant]
     Active Substance: BUPRENORPHINE HYDROCHLORIDE\NALOXONE HYDROCHLORIDE
     Dosage: 12 MG/ 3 MG
  5. LIPITOR [Concomitant]
     Active Substance: ATORVASTATIN CALCIUM
  6. LYRICA [Concomitant]
     Active Substance: PREGABALIN
  7. NOVOLOG [Concomitant]
     Active Substance: INSULIN ASPART
  8. ZOFRAN [Concomitant]
     Active Substance: ONDANSETRON HYDROCHLORIDE
  9. OXERVATE [Suspect]
     Active Substance: CENEGERMIN-BKBJ
     Indication: NEUROTROPHIC KERATOPATHY
  10. LUMIGAN [Concomitant]
     Active Substance: BIMATOPROST
  11. METFORMIN ER GASTRIC [Concomitant]
  12. OXERVATE [Suspect]
     Active Substance: CENEGERMIN-BKBJ
     Indication: HYPOAESTHESIA EYE
  13. ABILIFY [Concomitant]
     Active Substance: ARIPIPRAZOLE
  14. CELEBREX [Concomitant]
     Active Substance: CELECOXIB
  15. BASAGLAR KWIKPEN U?100 [Concomitant]
  16. BUSPIRONE HCL [Concomitant]
     Active Substance: BUSPIRONE HYDROCHLORIDE

REACTIONS (1)
  - Hospitalisation [Recovered/Resolved]
